FAERS Safety Report 7469978-6 (Version None)
Quarter: 2011Q2

REPORT INFORMATION
  Report Type: 
  Country: None (occurrence: None)
  Receive Date: 20110510
  Receipt Date: 20110503
  Transmission Date: 20111010
  Serious: Yes (Hospitalization)
  Sender: FDA-Public Use
  Company Number: SE-ROCHE-771954

PATIENT
  Sex: Female
  Weight: 68 kg

DRUGS (26)
  1. ACTEMRA [Suspect]
     Indication: WEBER-CHRISTIAN DISEASE
     Route: 042
     Dates: start: 20110203, end: 20110214
  2. LIPITOR [Concomitant]
     Dosage: 1-0-0
  3. SOLVEZINK [Concomitant]
     Dosage: 1-1-1
  4. CALCICHEW D3 [Concomitant]
     Dosage: 1-0-1
  5. PREDNISOLONE [Concomitant]
     Dosage: 1-0-1
  6. ALVEDON [Concomitant]
     Dosage: 2-2-2
  7. DUROFERON [Concomitant]
  8. METOPROLOL SUCCINATE [Concomitant]
     Dosage: 1 1/2-0-0
  9. ENALAPRIL [Concomitant]
     Dosage: 1/2-0-0
  10. OXYNORM [Concomitant]
     Dosage: FREQUENCY REPORTED AS 1 VB
  11. LEVOTHYROXINE SODIUM [Concomitant]
     Dosage: 1-0-0
  12. SPIRIVA [Concomitant]
     Dosage: 1-0-0
  13. BEZALIP [Concomitant]
     Dosage: 1-1-1
  14. NEXIUM [Concomitant]
     Dosage: 1-0-0
  15. OXYCONTIN [Concomitant]
     Dosage: 2-2-2
  16. ACETYLCYSTEINE [Concomitant]
     Dosage: 1-0-1
  17. METFORMIN HCL [Concomitant]
     Dosage: 1-1-0
  18. INSULIN [Concomitant]
  19. PRIMPERAN TAB [Concomitant]
     Dosage: FREQUENCY REPORTED AS 1 VB
  20. SYMBICORT FORTE [Concomitant]
     Dosage: 1-0-1
  21. GABAPENTIN [Concomitant]
     Dosage: 1-1-2
  22. DIMOR [Concomitant]
     Dosage: 1-0-0
  23. FOLACIN [Concomitant]
     Dosage: 1-0-0
  24. FURIX [Concomitant]
     Dosage: 1-0-0
  25. OMEPRAZOLE [Concomitant]
     Dosage: FREQUENCY REPORTED AS 1 VB
  26. PLENDIL [Concomitant]
     Dosage: 1-0-0

REACTIONS (7)
  - UROSEPSIS [None]
  - HAEMOGLOBIN DECREASED [None]
  - OEDEMA PERIPHERAL [None]
  - RAYNAUD'S PHENOMENON [None]
  - RETINAL ARTERY EMBOLISM [None]
  - PYREXIA [None]
  - NECROSIS [None]
